FAERS Safety Report 8238552-6 (Version None)
Quarter: 2012Q1

REPORT INFORMATION
  Report Type: 
  Country: None (occurrence: None)
  Receive Date: 20120327
  Receipt Date: 20120320
  Transmission Date: 20120608
  Serious: Yes (Other)
  Sender: FDA-Public Use
  Company Number: US-FRI-1000029209

PATIENT
  Age: 66 Year
  Sex: Female

DRUGS (9)
  1. VIIBRYD [Suspect]
     Dosage: 40 MG
     Dates: start: 20110101, end: 20120310
  2. VIIBRYD [Suspect]
     Dosage: 20 MG
     Dates: start: 20120311, end: 20120313
  3. VIIBRYD [Suspect]
     Indication: MAJOR DEPRESSION
     Dosage: 10 MG
     Dates: start: 20110101, end: 20110101
  4. VIIBRYD [Suspect]
     Dosage: 20 MG
     Dates: start: 20110101, end: 20110101
  5. SEROQUEL [Concomitant]
     Indication: MAJOR DEPRESSION
  6. DIOVAN [Concomitant]
     Indication: HYPERTENSION
  7. PLAQUENIL [Concomitant]
     Indication: SYSTEMIC LUPUS ERYTHEMATOSUS
  8. XANAX [Concomitant]
     Indication: ANXIETY
     Dosage: 0.5 MG TID
  9. NORVASC [Concomitant]
     Indication: HYPERTENSION

REACTIONS (7)
  - CONFUSIONAL STATE [None]
  - DIABETES MELLITUS [None]
  - FEAR [None]
  - DRUG INEFFECTIVE [None]
  - DIARRHOEA [None]
  - KIDNEY INFECTION [None]
  - NAUSEA [None]
